FAERS Safety Report 21734959 (Version 2)
Quarter: 2023Q1

REPORT INFORMATION
  Report Type: Spontaneous
  Country: US (occurrence: US)
  Receive Date: 20221215
  Receipt Date: 20230105
  Transmission Date: 20230417
  Serious: Yes (Other)
  Sender: FDA-Public Use
  Company Number: US-TEVA-2022-US-2834600

PATIENT
  Age: 4 Decade
  Sex: Female

DRUGS (8)
  1. MYCOPHENOLATE MOFETIL [Suspect]
     Active Substance: MYCOPHENOLATE MOFETIL
     Indication: Polychondritis
     Route: 065
     Dates: end: 201805
  2. PREDNISONE [Suspect]
     Active Substance: PREDNISONE
     Indication: Polychondritis
     Dosage: MINIMUM DOSAGE OF 20MG
     Route: 065
  3. PREDNISONE [Suspect]
     Active Substance: PREDNISONE
     Dosage: 10 MILLIGRAM DAILY;
     Route: 065
     Dates: start: 201904, end: 202003
  4. METHOTREXATE [Suspect]
     Active Substance: METHOTREXATE
     Indication: Crohn^s disease
     Route: 048
  5. DAPSONE [Suspect]
     Active Substance: DAPSONE
     Indication: Polychondritis
     Route: 065
  6. TOFACITINIB [Suspect]
     Active Substance: TOFACITINIB
     Indication: Polychondritis
     Dosage: FORMULATION: EXTENDED RELEASE , 11 MG
     Route: 048
     Dates: start: 201805, end: 201910
  7. METHOTREXATE [Suspect]
     Active Substance: METHOTREXATE
     Indication: Polychondritis
     Route: 058
  8. VEDOLIZUMAB [Concomitant]
     Active Substance: VEDOLIZUMAB
     Indication: Crohn^s disease
     Route: 065
     Dates: start: 2014

REACTIONS (9)
  - Liver function test increased [Unknown]
  - Respiratory tract infection [Unknown]
  - Arthritis [Unknown]
  - Alopecia [Unknown]
  - Acne [Unknown]
  - Depression [Unknown]
  - Weight increased [Unknown]
  - Rebound effect [Unknown]
  - Off label use [Unknown]
